FAERS Safety Report 6749970-7 (Version None)
Quarter: 2010Q2

REPORT INFORMATION
  Report Type: 
  Country: None (occurrence: None)
  Receive Date: 20100601
  Receipt Date: 20100521
  Transmission Date: 20101027
  Serious: Yes (Hospitalization, Other)
  Sender: FDA-Public Use
  Company Number: US-AMGEN-KDL413802

PATIENT
  Sex: Female

DRUGS (2)
  1. ENBREL [Suspect]
     Indication: RHEUMATOID ARTHRITIS
     Route: 058
     Dates: start: 20060320
  2. ENBREL [Suspect]
     Indication: OSTEOARTHRITIS

REACTIONS (7)
  - BACK PAIN [None]
  - DIABETES MELLITUS [None]
  - GAIT DISTURBANCE [None]
  - INJECTION SITE PAIN [None]
  - OSTEOARTHRITIS [None]
  - PNEUMONIA [None]
  - RHEUMATOID ARTHRITIS [None]
